FAERS Safety Report 9239286 (Version 2)
Quarter: 2013Q2

REPORT INFORMATION
  Report Type: Spontaneous
  Country: US (occurrence: US)
  Receive Date: 20130418
  Receipt Date: 20130424
  Transmission Date: 20140414
  Serious: Yes (Other)
  Sender: FDA-Public Use
  Company Number: US-ALEXION PHARMACEUTICALS INC.-A201300816

PATIENT
  Age: 31 Year
  Sex: Male
  Weight: 79.74 kg

DRUGS (28)
  1. SOLIRIS 300MG [Suspect]
     Indication: HAEMOLYTIC URAEMIC SYNDROME
     Dosage: 900 MG, QW
     Route: 042
     Dates: start: 201208
  2. SOLIRIS 300MG [Suspect]
     Dosage: 1200 MG, Q2W
     Route: 042
  3. ATIVAN [Concomitant]
     Indication: NAUSEA
     Dosage: 1 MG, Q4H PRN
     Route: 048
  4. BACTRIM DS [Concomitant]
     Dosage: 160 MG, BID
     Route: 048
  5. BACTROBAN [Concomitant]
     Dosage: 1 DF, PRN
     Route: 061
  6. CARVEDILOL [Concomitant]
     Dosage: 12.5 MG, QD
     Route: 048
  7. CELLCEPT [Concomitant]
     Dosage: 1500 MG, TID
     Route: 048
  8. CLINDAMYCIN HYDROCHLORIDE [Concomitant]
     Dosage: 300 MG, Q8H
     Route: 048
  9. CYMBALTA [Concomitant]
     Dosage: 60 MG, QD
     Route: 048
  10. DILAUDID [Concomitant]
     Indication: PAIN
     Dosage: 4 MG, Q4HUNK
     Route: 048
  11. FLUCONAZOLE [Concomitant]
     Dosage: 400 MG, BID
     Route: 048
  12. FOLIC ACID [Concomitant]
     Dosage: 1 MG, QD
     Route: 048
  13. GLEEVEC [Concomitant]
     Dosage: 400 MG, QD
     Route: 048
  14. HALOBETASOL PROPIONATE [Concomitant]
     Dosage: 1 DF, PRN
     Route: 061
  15. LASIX [Concomitant]
     Dosage: 40 MG, AS DIRECTED
     Route: 048
  16. MAGNESIUM OXIDE [Concomitant]
     Dosage: 800 MG, BID
     Route: 048
  17. MEPRON [Concomitant]
     Dosage: 750 MG/ML, 5 ML, QD
     Route: 048
  18. NORCO [Concomitant]
     Dosage: 10-325 MG, Q4H PRN
     Route: 048
  19. OXYCONTIN [Concomitant]
     Dosage: 120 MG, Q12H
     Route: 048
  20. PANTOPRAZOLE SODIUM [Concomitant]
     Dosage: 20 MG, BID
     Route: 048
  21. PREDNISONE [Concomitant]
     Dosage: 20 MG, BID
     Route: 048
  22. PROMETHAZINE HYDROCHLORIDE [Concomitant]
     Indication: NAUSEA
     Dosage: 25 MG, Q4H
     Route: 048
  23. PROVIGIL [Concomitant]
     Dosage: 100 MG, QD
     Route: 048
  24. SILVADENE [Concomitant]
     Dosage: 1 DF, PRN
     Route: 061
  25. SPIRONOLACTONE [Concomitant]
     Dosage: 50 MG, QD
     Route: 048
  26. TACROLIMUS [Concomitant]
     Dosage: 1 MG, BID
     Route: 048
  27. XANAX [Concomitant]
     Dosage: 0.5 MG, TID PRN
     Route: 048
  28. ZOLPIDEM TARTRATE [Concomitant]
     Dosage: 10 MG, QD HS
     Route: 048

REACTIONS (1)
  - Cytomegalovirus gastritis [Not Recovered/Not Resolved]
